FAERS Safety Report 24943340 (Version 1)
Quarter: 2025Q1

REPORT INFORMATION
  Report Type: Spontaneous
  Country: GB (occurrence: GB)
  Receive Date: 20250207
  Receipt Date: 20250207
  Transmission Date: 20250408
  Serious: Yes (Life-Threatening, Disabling, Other)
  Sender: BAYER HEALTHCARE PHARMACEUTICALS INC.
  Company Number: None

PATIENT
  Age: 53 Year
  Sex: Female

DRUGS (2)
  1. ESTRADIOL [Suspect]
     Active Substance: ESTRADIOL
     Indication: Menopausal symptoms
  2. LEVOTHYROXINE [Concomitant]
     Active Substance: LEVOTHYROXINE
     Indication: Adverse drug reaction

REACTIONS (6)
  - Medication error [Unknown]
  - Breast cancer female [Not Recovered/Not Resolved]
  - Malaise [None]
  - Breast tenderness [None]
  - Breast pain [None]
  - General physical health deterioration [None]
